FAERS Safety Report 8782545 (Version 1)
Quarter: 2012Q4

REPORT INFORMATION
  Report Type: Report from Study
  Country: US (occurrence: US)
  Receive Date: 20120913
  Receipt Date: 20120913
  Transmission Date: 20130627
  Serious: No
  Sender: FDA-Public Use
  Company Number: US-VERTEX PHARMACEUTICAL INC.-AE-2012-010067

PATIENT
  Age: 49 Year
  Sex: Male
  Weight: 59.91 kg

DRUGS (6)
  1. INCIVEK [Suspect]
     Indication: HEPATITIS C
     Route: 048
  2. PEGINTRON KIT [Concomitant]
     Indication: HEPATITIS C
  3. RIBAPAK PAK [Concomitant]
     Indication: HEPATITIS C
  4. CEPHALEXIN [Concomitant]
  5. HYDROCO/ APAP [Concomitant]
  6. AMBIEN [Concomitant]

REACTIONS (5)
  - Influenza like illness [Unknown]
  - Headache [Unknown]
  - Affect lability [Unknown]
  - Fatigue [Unknown]
  - Haemorrhoids [Unknown]
